FAERS Safety Report 18199300 (Version 2)
Quarter: 2020Q3

REPORT INFORMATION
  Report Type: Spontaneous
  Country: GB (occurrence: GB)
  Receive Date: 20200826
  Receipt Date: 20200828
  Transmission Date: 20201103
  Serious: Yes (Death, Life-Threatening, Hospitalization, Other)
  Sender: FDA-Public Use
  Company Number: NVSC2020GB225697

PATIENT
  Age: 63 Year
  Sex: Male

DRUGS (4)
  1. ZANAMIVIR [Concomitant]
     Active Substance: ZANAMIVIR
     Indication: PNEUMONIA INFLUENZAL
     Dosage: UNK
     Route: 065
  2. AMPHOTERICIN B. [Suspect]
     Active Substance: AMPHOTERICIN B
     Indication: ASPERGILLUS INFECTION
     Dosage: UNK
     Route: 065
  3. METHOTREXATE. [Suspect]
     Active Substance: METHOTREXATE
     Indication: RHEUMATOID ARTHRITIS
     Dosage: UNK
     Route: 065
  4. VORICONAZOLE. [Suspect]
     Active Substance: VORICONAZOLE
     Indication: PRODUCT USED FOR UNKNOWN INDICATION
     Dosage: UNK
     Route: 065

REACTIONS (6)
  - Drug ineffective [Fatal]
  - Loss of consciousness [Fatal]
  - Pneumonia influenzal [Fatal]
  - Respiratory failure [Fatal]
  - CNS ventriculitis [Unknown]
  - Bronchopulmonary aspergillosis [Fatal]
